FAERS Safety Report 9894578 (Version 1)
Quarter: 2014Q1

REPORT INFORMATION
  Report Type: Spontaneous
  Country: US (occurrence: US)
  Receive Date: 20140213
  Receipt Date: 20140213
  Transmission Date: 20141002
  Serious: Yes (Death, Hospitalization)
  Sender: FDA-Public Use
  Company Number: US-BANPHARM-20142116

PATIENT
  Age: 53 Year
  Sex: Female

DRUGS (11)
  1. VALPROIC ACID UNKNOWN PRODUCT [Suspect]
     Indication: PRODUCT USED FOR UNKNOWN INDICATION
     Route: 048
  2. DIAZEPAM [Concomitant]
  3. BUPROPION [Concomitant]
  4. GABAPENTIN [Concomitant]
  5. DULOXETINE [Concomitant]
  6. LISINOPRIL [Concomitant]
  7. METFORMIN [Concomitant]
  8. OXYBUTYNIN [Concomitant]
  9. MIRTAZAPIN [Concomitant]
  10. LOVASTATIN [Concomitant]
  11. ACEAMINOPHEN [Concomitant]

REACTIONS (2)
  - Death [Fatal]
  - Completed suicide [Fatal]
